FAERS Safety Report 4708802-9 (Version None)
Quarter: 2005Q3

REPORT INFORMATION
  Report Type: 
  Country: None (occurrence: None)
  Receive Date: 20050705
  Receipt Date: 20050623
  Transmission Date: 20060218
  Serious: Yes (Other)
  Sender: FDA-Public Use
  Company Number: L05-NLD-02135-01

PATIENT
  Sex: Female
  Weight: 1.49 kg

DRUGS (1)
  1. INDOMETHACIN [Suspect]
     Indication: PATENT DUCTUS ARTERIOSUS

REACTIONS (8)
  - ABDOMINAL DISTENSION [None]
  - ABDOMINAL RIGIDITY [None]
  - FLATULENCE [None]
  - ILEAL PERFORATION [None]
  - INTESTINAL INFARCTION [None]
  - NEONATAL DISORDER [None]
  - PNEUMOPERITONEUM [None]
  - VOMITING NEONATAL [None]
